FAERS Safety Report 9094570 (Version 1)
Quarter: 2013Q1

REPORT INFORMATION
  Report Type: Spontaneous
  Country: JP (occurrence: JP)
  Receive Date: 20130220
  Receipt Date: 20130220
  Transmission Date: 20140127
  Serious: Yes (Death, Hospitalization, Disabling)
  Sender: FDA-Public Use
  Company Number: JP-009507513-1302JPN008512

PATIENT
  Age: 29 Year
  Sex: Male
  Weight: 65 kg

DRUGS (23)
  1. TEMODAL [Suspect]
     Indication: ANAPLASTIC ASTROCYTOMA
     Dosage: 75 MG/SQM, QD
     Route: 048
     Dates: start: 20100610, end: 20100727
  2. TEMODAL [Suspect]
     Dosage: 150 MG/SQM, QD
     Route: 048
     Dates: start: 20100922, end: 20100926
  3. TEMODAL [Suspect]
     Dosage: 200 MG/SQM, QD
     Route: 048
     Dates: start: 20101027, end: 20101031
  4. TEMODAL [Suspect]
     Dosage: 200 MG/SQM, QD
     Route: 048
     Dates: start: 20101125, end: 20101129
  5. TEMODAL [Suspect]
     Dosage: 200 MG/SQM, QD
     Route: 048
     Dates: start: 20101229, end: 20110102
  6. TEMODAL [Suspect]
     Dosage: 200 MG/SQM, QD
     Route: 048
     Dates: start: 20110214, end: 20110218
  7. TEMODAL [Suspect]
     Dosage: 200 MG/SQM, QD
     Route: 048
     Dates: start: 20110331, end: 20110404
  8. TEMODAL [Suspect]
     Dosage: 200 MG/SQM, QD
     Route: 048
     Dates: start: 20110501, end: 20110505
  9. TEMODAL [Suspect]
     Dosage: 200 MG/SQM,, QD
     Route: 048
     Dates: start: 20110614, end: 20110618
  10. TEMODAL [Suspect]
     Dosage: 200 MG/SQM,, QD
     Route: 048
     Dates: start: 20110727, end: 20110731
  11. TEMODAL [Suspect]
     Dosage: 75 MG/SQM,, QD
     Route: 048
     Dates: start: 20111004, end: 20111122
  12. TEMODAL [Suspect]
     Dosage: 200 MG/SQM,, QD
     Route: 048
     Dates: start: 20120105, end: 20120109
  13. TEMODAL [Suspect]
     Dosage: UNK
  14. BAKTAR [Suspect]
     Indication: ANTIFUNGAL PROPHYLAXIS
     Dosage: UNK
     Route: 048
     Dates: start: 20100629, end: 20100709
  15. BAKTAR [Suspect]
     Dosage: UNK
     Route: 048
     Dates: start: 20111004, end: 20111017
  16. TEGRETOL [Suspect]
     Dosage: UNK
     Route: 048
     Dates: end: 20100618
  17. TEGRETOL [Suspect]
     Dosage: UNK
     Route: 048
     Dates: start: 20100615
  18. DEPAKENE [Suspect]
     Dosage: UNK
     Route: 048
  19. BENAMBAX [Concomitant]
     Indication: ANTIFUNGAL PROPHYLAXIS
     Dosage: UNK
     Route: 055
     Dates: start: 20100716, end: 20101005
  20. MAGMITT [Concomitant]
     Indication: PROPHYLAXIS
     Dosage: UNK
     Route: 048
     Dates: end: 20100727
  21. NAVOBAN [Concomitant]
     Indication: PROPHYLAXIS
     Dosage: UNK
     Route: 048
     Dates: start: 20100610, end: 20120109
  22. FAMOTIDINE [Concomitant]
     Indication: PROPHYLAXIS
     Dosage: UNK
     Route: 048
     Dates: start: 20100610, end: 20120213
  23. TEGRETOL [Concomitant]
     Indication: PROPHYLAXIS
     Dosage: UNK
     Route: 048
     Dates: end: 20120213

REACTIONS (8)
  - Disease progression [Fatal]
  - Hydrocephalus [Recovered/Resolved]
  - White blood cell count decreased [Recovered/Resolved]
  - Platelet count decreased [Recovered/Resolved]
  - Lymphocyte count decreased [Recovering/Resolving]
  - Neutrophil count decreased [Recovering/Resolving]
  - Convulsion [Recovered/Resolved]
  - Rash [Recovered/Resolved]
